FAERS Safety Report 5070923-1 (Version None)
Quarter: 2006Q3

REPORT INFORMATION
  Report Type: 
  Country: None (occurrence: None)
  Receive Date: 20060804
  Receipt Date: 20060428
  Transmission Date: 20061208
  Serious: Yes (Life-Threatening, Hospitalization, Other)
  Sender: FDA-Public Use
  Company Number: PHEH2006US05622

PATIENT
  Age: 14 Year
  Sex: Male
  Weight: 68 kg

DRUGS (5)
  1. EXJADE [Suspect]
     Indication: BLOOD IRON INCREASED
     Dosage: 750 MG, QD
     Route: 048
     Dates: start: 20060401
  2. EXJADE [Suspect]
     Dosage: 1500 MG, QD
     Dates: start: 20060201, end: 20060401
  3. NAPROSYN [Concomitant]
     Indication: PAIN
     Dosage: UNK, PRN
  4. TYLENOL W/ CODEINE NO. 3 [Concomitant]
     Indication: PAIN
     Dosage: UNK, PRN
  5. ADDERALL 10 [Concomitant]

REACTIONS (8)
  - ATELECTASIS [None]
  - CHEST PAIN [None]
  - DYSPNOEA [None]
  - HYPOXIA [None]
  - LUNG DISORDER [None]
  - LUNG INFILTRATION [None]
  - PULMONARY EMBOLISM [None]
  - PYREXIA [None]
